FAERS Safety Report 7704781-0 (Version None)
Quarter: 2011Q3

REPORT INFORMATION
  Report Type: 
  Country: None (occurrence: None)
  Receive Date: 20110823
  Receipt Date: 20110822
  Transmission Date: 20111222
  Serious: Yes (Other)
  Sender: FDA-Public Use
  Company Number: US-PFIZER INC-2011018014

PATIENT
  Sex: Female
  Weight: 58.05 kg

DRUGS (4)
  1. DEPAKOTE [Concomitant]
     Dosage: UNK
  2. RISPERDAL [Concomitant]
     Dosage: UNK
  3. XANAX [Concomitant]
     Indication: SLEEP DISORDER
     Dosage: 1 MG, DAILY
  4. NICOTROL [Suspect]
     Indication: SMOKING CESSATION THERAPY
     Dosage: 10 MG FIVE OR SIX TIMES AN HOUR
     Route: 045
     Dates: start: 20110123

REACTIONS (5)
  - COUGH [None]
  - LACRIMATION INCREASED [None]
  - INTERVERTEBRAL DISC OPERATION [None]
  - SNEEZING [None]
  - PAIN [None]
